FAERS Safety Report 4628041-X (Version None)
Quarter: 2005Q2

REPORT INFORMATION
  Report Type: 
  Country: None (occurrence: None)
  Receive Date: 20050405
  Receipt Date: 20050405
  Transmission Date: 20051028
  Serious: Yes (Other)
  Sender: FDA-Public Use
  Company Number: None

PATIENT
  Age: 56 Year
  Sex: Female

DRUGS (8)
  1. GABAPENTIN [Suspect]
     Indication: CONVULSION
     Dosage: 300 MG TID
  2. SYNTHROID [Concomitant]
  3. METHYLPHENIDATE HCL [Concomitant]
  4. FENTANYL [Concomitant]
  5. PREVACID [Concomitant]
  6. KLONOPIN [Concomitant]
  7. PREMARIN [Concomitant]
  8. LIPITOR [Concomitant]

REACTIONS (2)
  - CONVULSION [None]
  - PHARMACEUTICAL PRODUCT COMPLAINT [None]
